FAERS Safety Report 23223873 (Version 1)
Quarter: 2023Q4

REPORT INFORMATION
  Report Type: Spontaneous
  Country: US (occurrence: US)
  Receive Date: 20231124
  Receipt Date: 20231124
  Transmission Date: 20240109
  Serious: Yes (Other)
  Sender: FDA-Public Use
  Company Number: US-STRIDES ARCOLAB LIMITED-2023SP013946

PATIENT
  Age: 82 Year
  Sex: Female

DRUGS (7)
  1. LOPERAMIDE [Suspect]
     Active Substance: LOPERAMIDE
     Indication: Diarrhoea
     Dosage: 4 MILLIGRAM, BID (TWO CAPS)
     Route: 048
  2. DIPHENOXYLATE HYDROCHLORIDE AND ATROPINE SULFATE [Suspect]
     Active Substance: ATROPINE SULFATE\DIPHENOXYLATE HYDROCHLORIDE
     Indication: Diarrhoea
     Dosage: UNK, PRN
     Route: 065
  3. BISMUTH SUBSALICYLATE [Suspect]
     Active Substance: BISMUTH SUBSALICYLATE
     Indication: Diarrhoea
     Dosage: UNK, AROUND THE CLOCK
     Route: 065
  4. CHOLESTYRAMINE [Suspect]
     Active Substance: CHOLESTYRAMINE
     Indication: Diarrhoea
     Dosage: 4 MILLIGRAM, TID
     Route: 048
  5. OCTREOTIDE [Suspect]
     Active Substance: OCTREOTIDE
     Indication: Diarrhoea
     Dosage: 150 MILLIGRAM, EVERY 8 HOURS (INTRAVENOUS (IV) PUSH)
     Route: 042
  6. OCTREOTIDE [Suspect]
     Active Substance: OCTREOTIDE
     Dosage: UNK, INFUSION
     Route: 065
  7. BUDESONIDE [Suspect]
     Active Substance: BUDESONIDE
     Indication: Diarrhoea
     Dosage: 9 MILLIGRAM (THREE CAPS DAILY)
     Route: 048

REACTIONS (1)
  - Drug ineffective [Unknown]
